FAERS Safety Report 8244065-8 (Version None)
Quarter: 2012Q1

REPORT INFORMATION
  Report Type: 
  Country: None (occurrence: None)
  Receive Date: 20120329
  Receipt Date: 20120319
  Transmission Date: 20120608
  Serious: No
  Sender: FDA-Public Use
  Company Number: EE-ELI_LILLY_AND_COMPANY-EE201203001964

PATIENT
  Sex: Female

DRUGS (10)
  1. ISOSORBIDE DINITRATE [Concomitant]
     Indication: MYOCARDIAL ISCHAEMIA
     Dosage: 5 MG, BID
  2. RETAFYLLIN [Concomitant]
     Indication: CHRONIC OBSTRUCTIVE PULMONARY DISEASE
     Dosage: 200 MG, BID
  3. TRIFAS                             /01036501/ [Concomitant]
     Indication: CARDIAC FAILURE
     Dosage: 10 MG, UNKNOWN
  4. RAMIPRIL [Concomitant]
     Dosage: 1.25 MG, UNKNOWN
  5. DIAPREL MR [Concomitant]
     Indication: DIABETES MELLITUS
     Dosage: 90 MG, UNKNOWN
  6. OXYGEN [Concomitant]
     Dosage: UNK, UNKNOWN
  7. SPIRONOLACTONE [Concomitant]
     Indication: CARDIAC FAILURE
     Dosage: 25 MG, UNKNOWN
  8. CYMBALTA [Suspect]
     Indication: MAJOR DEPRESSION
     Dosage: 30 MG, EACH MORNING
  9. RANITIDINE [Concomitant]
     Indication: DYSPEPSIA
     Dosage: 150 MG, UNKNOWN
  10. ONBREZ [Concomitant]
     Indication: CHRONIC OBSTRUCTIVE PULMONARY DISEASE
     Dosage: 1 DF, UNKNOWN
     Route: 055

REACTIONS (4)
  - ALANINE AMINOTRANSFERASE INCREASED [None]
  - GAMMA-GLUTAMYLTRANSFERASE INCREASED [None]
  - BLOOD ALKALINE PHOSPHATASE INCREASED [None]
  - ASPARTATE AMINOTRANSFERASE INCREASED [None]
